FAERS Safety Report 14561812 (Version 2)
Quarter: 2019Q1

REPORT INFORMATION
  Report Type: Spontaneous
  Country: US (occurrence: US)
  Receive Date: 20180222
  Receipt Date: 20190219
  Transmission Date: 20190417
  Serious: Yes (Hospitalization, Other)
  Sender: FDA-Public Use
  Company Number: US-SA-2018SA037786

PATIENT
  Age: 81 Year
  Sex: Male

DRUGS (1)
  1. SEVELAMER CARBONATE. [Suspect]
     Active Substance: SEVELAMER CARBONATE
     Indication: END STAGE RENAL DISEASE
     Dosage: UNK UNK,UNK
     Route: 065

REACTIONS (10)
  - Haematochezia [Recovered/Resolved]
  - Crystal deposit intestine [Recovered/Resolved]
  - Vomiting [Recovered/Resolved]
  - Diarrhoea [Recovered/Resolved]
  - Pyrexia [Recovered/Resolved]
  - Duodenal ulcer haemorrhage [Recovered/Resolved]
  - Abdominal pain [Recovered/Resolved]
  - Nausea [Recovered/Resolved]
  - Gastrointestinal inflammation [Recovered/Resolved]
  - Duodenal ulcer [Recovered/Resolved]
